FAERS Safety Report 4516886-6 (Version None)
Quarter: 2004Q4

REPORT INFORMATION
  Report Type: 
  Country: None (occurrence: None)
  Receive Date: 20041029
  Receipt Date: 20040916
  Transmission Date: 20050328
  Serious: No
  Sender: FDA-Public Use
  Company Number: 2004-120393-NL

PATIENT
  Age: 20 Year
  Sex: Female

DRUGS (3)
  1. NUVARING [Suspect]
     Indication: CONTRACEPTION
     Dosage: DF DAILY VAGINAL
     Route: 067
     Dates: start: 20040801, end: 20040801
  2. NEUTROGENA SOAP [Concomitant]
  3. ALLEGRA [Concomitant]

REACTIONS (3)
  - GENITAL PRURITUS FEMALE [None]
  - HYPERSENSITIVITY [None]
  - RASH PRURITIC [None]
